FAERS Safety Report 7823247-0 (Version None)
Quarter: 2011Q4

REPORT INFORMATION
  Report Type: 
  Country: None (occurrence: None)
  Receive Date: 20111019
  Receipt Date: 20111007
  Transmission Date: 20120403
  Serious: Yes (Life-Threatening, Hospitalization)
  Sender: FDA-Public Use
  Company Number: US-RANBAXY-2011US-49188

PATIENT
  Age: 51 Year
  Sex: Male

DRUGS (2)
  1. METFFORMIN HYDROCHLORIDE [Suspect]
     Indication: PRODUCT USED FOR UNKNOWN INDICATION
     Dosage: UNK, UNK
     Route: 065
  2. ACETAMINOPHEN AND OXYCODONE HCL [Suspect]
     Indication: ANALGESIC THERAPY
     Dosage: UNK
     Route: 065

REACTIONS (3)
  - MEDICATION ERROR [None]
  - LACTIC ACIDOSIS [None]
  - ACCIDENTAL OVERDOSE [None]
